FAERS Safety Report 9232951 (Version 1)
Quarter: 2013Q1

REPORT INFORMATION
  Report Type: Spontaneous
  Country: US (occurrence: None)
  Receive Date: 20121031
  Receipt Date: 20121031
  Transmission Date: 20140127
  Serious: Yes (Other)
  Sender: FDA-Public Use
  Company Number: PHEH2012US013897

PATIENT
  Age: 43 Year
  Sex: Female

DRUGS (1)
  1. GILENYA (FTY)CASPULE, 0.5MG [Suspect]
     Indication: MULTIPLE SCLEROSIS
     Route: 048
     Dates: start: 20110221

REACTIONS (15)
  - Multiple sclerosis relapse [None]
  - Insomnia [None]
  - Tachyphrenia [None]
  - Anxiety [None]
  - Weight decreased [None]
  - Headache [None]
  - Hypoaesthesia [None]
  - VIIth nerve paralysis [None]
  - Drooling [None]
  - Dysarthria [None]
  - Pain [None]
  - Hyperaesthesia [None]
  - Fatigue [None]
  - Tremor [None]
  - Restlessness [None]
